FAERS Safety Report 6695357-5 (Version None)
Quarter: 2010Q2

REPORT INFORMATION
  Report Type: 
  Country: None (occurrence: None)
  Receive Date: 20100423
  Receipt Date: 20100423
  Transmission Date: 20101027
  Serious: No
  Sender: FDA-Public Use
  Company Number: None

PATIENT
  Age: 41 Year
  Sex: Female
  Weight: 96.6 kg

DRUGS (1)
  1. REMICADE [Suspect]
     Indication: RHEUMATOID ARTHRITIS
     Dosage: 400MG EVERY 4 WEEKS 041 INTRAVENOUS DRIP
     Route: 041
     Dates: start: 20051227, end: 20100205

REACTIONS (2)
  - DEAFNESS [None]
  - MASTOIDITIS [None]
